FAERS Safety Report 8784996 (Version 1)
Quarter: 2012Q4

REPORT INFORMATION
  Report Type: Spontaneous
  Country: US (occurrence: None)
  Receive Date: 20120907
  Receipt Date: 20120907
  Transmission Date: 20130627
  Serious: Yes (Death)
  Sender: FDA-Public Use
  Company Number: None

PATIENT
  Age: 84 Year
  Sex: Female

DRUGS (1)
  1. PRADAXA [Suspect]
     Indication: ATRIAL FIBRILLATION
     Route: 048

REACTIONS (6)
  - Bradycardia [None]
  - Pulseless electrical activity [None]
  - Cardiac arrest [None]
  - Haematochezia [None]
  - Rectal haemorrhage [None]
  - Gastrointestinal haemorrhage [None]
